FAERS Safety Report 10947887 (Version 1)
Quarter: 2015Q1

REPORT INFORMATION
  Report Type: Spontaneous
  Country: CA (occurrence: CA)
  Receive Date: 20150324
  Receipt Date: 20150324
  Transmission Date: 20150721
  Serious: Yes (Other)
  Sender: FDA-Public Use
  Company Number: CA-BEH-2014046814

PATIENT
  Age: 94 Year
  Sex: Female

DRUGS (3)
  1. PRIVIGEN [Suspect]
     Active Substance: HUMAN IMMUNOGLOBULIN G
     Dosage: TRANSFUSION COMPLETED
     Dates: start: 20141020, end: 20141020
  2. CIPROFLOXACIN REPORTED AS CIPRO [Concomitant]
     Indication: URINARY TRACT INFECTION
     Dosage: 500
  3. PRIVIGEN [Suspect]
     Active Substance: HUMAN IMMUNOGLOBULIN G
     Dosage: AMOUNT TRANSFUSED: 4/4
     Dates: start: 20141020, end: 20141020

REACTIONS (10)
  - Tachypnoea [Recovered/Resolved]
  - Tachycardia [Recovered/Resolved]
  - Dyspnoea [Recovered/Resolved]
  - Hypoventilation [Recovered/Resolved]
  - Productive cough [Unknown]
  - Fluid overload [Unknown]
  - Pleural effusion [Unknown]
  - Hypoxia [Recovered/Resolved]
  - Pyrexia [Recovered/Resolved]
  - Hypotension [Recovered/Resolved]

NARRATIVE: CASE EVENT DATE: 20141020
